FAERS Safety Report 21283997 (Version 2)
Quarter: 2023Q2

REPORT INFORMATION
  Report Type: Spontaneous
  Country: IN (occurrence: IN)
  Receive Date: 20220901
  Receipt Date: 20230412
  Transmission Date: 20230721
  Serious: Yes (Other)
  Sender: FDA-Public Use
  Company Number: IN-STRIDES ARCOLAB LIMITED-2022SP010987

PATIENT
  Age: 24 Year
  Sex: Female

DRUGS (9)
  1. MEFENAMIC ACID [Suspect]
     Active Substance: MEFENAMIC ACID
     Indication: Dysmenorrhoea
     Dosage: 500 MILLIGRAM
     Route: 048
  2. MEFENAMIC ACID [Suspect]
     Active Substance: MEFENAMIC ACID
     Dosage: 50MG OF MEFENAMIC-ACID (1/10TH ORIGINAL DOSE), DPT
     Route: 048
  3. MEFENAMIC ACID [Suspect]
     Active Substance: MEFENAMIC ACID
     Dosage: UNK, AFTER 30 MINUTES, THE SECOND DOSE WAS GIVEN
     Route: 065
  4. RANITIDINE [Suspect]
     Active Substance: RANITIDINE
     Indication: Lip ulceration
     Dosage: UNK
     Route: 065
  5. RANITIDINE [Suspect]
     Active Substance: RANITIDINE
     Indication: Mouth ulceration
  6. PREDNISONE [Concomitant]
     Active Substance: PREDNISONE
     Indication: Lip ulceration
     Dosage: UNK
     Route: 065
  7. PREDNISONE [Concomitant]
     Active Substance: PREDNISONE
     Indication: Mouth ulceration
     Dosage: UNK, TAPERED OVER A PERIOD OF ONE WEEK (DAY 1-7), WITH COMPLETE CESSATION ON DAY 8
     Route: 065
  8. CLOBETASOL PROPIONATE [Concomitant]
     Active Substance: CLOBETASOL PROPIONATE
     Indication: Lip ulceration
     Dosage: UNK
     Route: 065
  9. CLOBETASOL PROPIONATE [Concomitant]
     Active Substance: CLOBETASOL PROPIONATE
     Indication: Mouth ulceration

REACTIONS (3)
  - Fixed eruption [Recovered/Resolved]
  - Drug hypersensitivity [Unknown]
  - Off label use [Unknown]
